FAERS Safety Report 13619035 (Version 1)
Quarter: 2017Q2

REPORT INFORMATION
  Report Type: Spontaneous
  Country: US (occurrence: US)
  Receive Date: 20170606
  Receipt Date: 20170606
  Transmission Date: 20170830
  Serious: No
  Sender: FDA-Public Use
  Company Number: US-AMGEN-USASP2016126291

PATIENT
  Age: 96 Year
  Sex: Male
  Weight: 73 kg

DRUGS (11)
  1. PROCRIT [Suspect]
     Active Substance: ERYTHROPOIETIN
     Dosage: 40000 UNIT, QWK
     Route: 065
     Dates: start: 201410, end: 201503
  2. LEVOTHYROXINE. [Concomitant]
     Active Substance: LEVOTHYROXINE
     Indication: HYPOTHYROIDISM
     Dosage: 75 MUG, QD
  3. PROCRIT [Suspect]
     Active Substance: ERYTHROPOIETIN
     Dosage: 60000 UNIT, QWK
     Route: 065
     Dates: start: 20150323, end: 20150508
  4. AMLODIPINE [Concomitant]
     Active Substance: AMLODIPINE BESYLATE
     Indication: HYPERTENSION
     Dosage: 10 MG, QD
  5. FUROSEMIDE. [Concomitant]
     Active Substance: FUROSEMIDE
     Indication: OEDEMA
     Dosage: 20 MG, QD
  6. SERTRALINE [Concomitant]
     Active Substance: SERTRALINE HYDROCHLORIDE
     Dosage: 75 MG, QD
  7. METOPROLOL. [Concomitant]
     Active Substance: METOPROLOL
     Indication: HYPERTENSION
     Dosage: 25 MG, BID
  8. GABAPENTIN. [Concomitant]
     Active Substance: GABAPENTIN
     Dosage: 100 MG, BID
  9. PROCRIT [Suspect]
     Active Substance: ERYTHROPOIETIN
     Indication: MYELODYSPLASTIC SYNDROME
     Dosage: 40000 UNIT, QWK
     Route: 065
  10. LIPITOR [Concomitant]
     Active Substance: ATORVASTATIN CALCIUM
     Indication: BLOOD CHOLESTEROL INCREASED
     Dosage: 20 MG, QD
  11. PROCRIT [Suspect]
     Active Substance: ERYTHROPOIETIN
     Dosage: 80000 UNIT, QWK
     Route: 065
     Dates: start: 20160526

REACTIONS (2)
  - Feeling abnormal [Unknown]
  - Haemoglobin decreased [Unknown]
